FAERS Safety Report 4660176-8 (Version None)
Quarter: 2005Q2

REPORT INFORMATION
  Report Type: 
  Country: None (occurrence: None)
  Receive Date: 20050419
  Receipt Date: 20040607
  Transmission Date: 20051028
  Serious: Yes (Life-Threatening, Hospitalization)
  Sender: FDA-Public Use
  Company Number: 20040600316

PATIENT
  Age: 64 Year
  Sex: Male
  Weight: 91 kg

DRUGS (17)
  1. HEPARIN [Suspect]
     Indication: DEEP VEIN THROMBOSIS
     Dates: start: 20040414, end: 20040414
  2. PROCRIT [Suspect]
     Indication: ANAEMIA
     Dosage: 40000 UNITS UNK SC
     Route: 058
     Dates: start: 20040409
  3. PLACEBO [Suspect]
     Indication: ANAEMIA
     Dates: start: 20040409
  4. XYGRIS (DROTRECOGIN ALFA) [Suspect]
     Indication: SEPSIS
     Dates: start: 20040407
  5. LEPIRUDIN [Suspect]
     Indication: THROMBOCYTOPENIA
     Dates: start: 20040412
  6. SOLU-CORTEF [Suspect]
     Indication: SEPSIS
     Dates: start: 20040414
  7. FERROUS SULFATE [Concomitant]
  8. PANTOPRAZOLE [Concomitant]
  9. ACETAMINOPHEN [Concomitant]
  10. FENTANYL CITRATE [Concomitant]
  11. LEVOPHED [Concomitant]
  12. AMIODARONE HYDROCHLORIDE [Concomitant]
  13. DULCOLAX (BISCODYL) [Concomitant]
  14. POTASSIUM CHLORIDE [Concomitant]
  15. UNASYN (UNACID) [Concomitant]
  16. CEFTAZIDIME [Concomitant]
  17. CALCIIUM CHLORIDE [Concomitant]

REACTIONS (1)
  - HEPATIC HAEMATOMA [None]
